FAERS Safety Report 16225003 (Version 16)
Quarter: 2020Q3

REPORT INFORMATION
  Report Type: Spontaneous
  Country: US (occurrence: US)
  Receive Date: 20190422
  Receipt Date: 20200909
  Transmission Date: 20201102
  Serious: Yes (Hospitalization, Other)
  Sender: FDA-Public Use
  Company Number: US-PFIZER INC-2019168884

PATIENT
  Age: 70 Year
  Sex: Female
  Weight: 55 kg

DRUGS (12)
  1. DIPRIVAN [Concomitant]
     Active Substance: PROPOFOL
     Dosage: 20 MG
     Route: 042
     Dates: start: 20190721
  2. BACLOFEN. [Concomitant]
     Active Substance: BACLOFEN
     Indication: MUSCLE SPASMS
     Dosage: 10 MG, AS NEEDED (EVERY 8 HOURS AS NEEDED)
     Route: 048
  3. LYRICA [Suspect]
     Active Substance: PREGABALIN
     Indication: NEURALGIA
     Dosage: 75 MG, UNK
     Route: 048
     Dates: start: 201903, end: 201903
  4. LYRICA [Suspect]
     Active Substance: PREGABALIN
     Dosage: 150 MG [TOOK 2?75 MG (JUST ONCE)]
     Dates: start: 201904, end: 201904
  5. LYRICA [Suspect]
     Active Substance: PREGABALIN
     Dosage: 100 MG, 2X/DAY [ONE CAPSULE IN THE MORNING AND ONE IN THE EVENING BY MOUTH]
     Route: 048
     Dates: start: 2019
  6. LIDOCAINE. [Concomitant]
     Active Substance: LIDOCAINE
     Dosage: 1 %, UNK (10 ML)
     Dates: start: 20190721
  7. LYRICA [Suspect]
     Active Substance: PREGABALIN
     Dosage: 150 MG, 2X/DAY
  8. LYRICA [Suspect]
     Active Substance: PREGABALIN
     Dosage: 100 MG, 2X/DAY(EVERY 12 HOURS; QTY: 180 CAPSULES)
     Route: 048
  9. ACYCLOVIR. [Concomitant]
     Active Substance: ACYCLOVIR
     Dosage: UNK, DAILY
  10. LYRICA [Suspect]
     Active Substance: PREGABALIN
     Indication: NERVE INJURY
     Dosage: 75 MG, 2X/DAY, [EVERY 12 HOURS]
     Route: 048
     Dates: start: 20190318, end: 20190402
  11. LYRICA [Suspect]
     Active Substance: PREGABALIN
     Indication: PAIN
     Dosage: 100 MG, 2X/DAY, [EVERY 12 HOURS]
     Route: 048
     Dates: start: 20190403, end: 20190425
  12. MORPHINE SULFATE. [Concomitant]
     Active Substance: MORPHINE SULFATE
     Indication: PAIN
     Dosage: 15 MG, 2X/DAY (EVERY TWELVE HOURS)
     Route: 048
     Dates: start: 20190318

REACTIONS (33)
  - Neoplasm malignant [Unknown]
  - Non-Hodgkin^s lymphoma [Recovering/Resolving]
  - Feeling abnormal [Recovered/Resolved]
  - Pain [Unknown]
  - Paraesthesia [Unknown]
  - Influenza like illness [Unknown]
  - Lumbosacral radiculopathy [Unknown]
  - Foot fracture [Recovering/Resolving]
  - Nausea [Unknown]
  - Pain in extremity [Unknown]
  - Illness [Unknown]
  - Myalgia [Recovered/Resolved]
  - Hyperhidrosis [Recovered/Resolved]
  - Wrist fracture [Recovered/Resolved]
  - Fracture [Recovered/Resolved]
  - Gait disturbance [Recovered/Resolved]
  - Pyrexia [Recovered/Resolved]
  - Arthralgia [Recovered/Resolved]
  - Back pain [Unknown]
  - Drug ineffective [Unknown]
  - Muscle spasms [Unknown]
  - Abdominal discomfort [Unknown]
  - Fall [Unknown]
  - Peripheral swelling [Unknown]
  - Bone disorder [Unknown]
  - Hypoaesthesia [Unknown]
  - Intentional dose omission [Unknown]
  - Vomiting [Unknown]
  - Ulna fracture [Not Recovered/Not Resolved]
  - Withdrawal syndrome [Unknown]
  - Oedema peripheral [Unknown]
  - Balance disorder [Unknown]
  - Lumbar radiculopathy [Unknown]

NARRATIVE: CASE EVENT DATE: 2019
